FAERS Safety Report 24536894 (Version 1)
Quarter: 2024Q4

REPORT INFORMATION
  Report Type: Spontaneous
  Country: DE (occurrence: EU)
  Receive Date: 20241022
  Receipt Date: 20241022
  Transmission Date: 20250115
  Serious: No
  Sender: ASCENDIS PHARMA
  Company Number: DE-ASCENDIS PHARMA-2024EU005648

PATIENT

DRUGS (1)
  1. SKYTROFA [Suspect]
     Active Substance: LONAPEGSOMATROPIN-TCGD
     Indication: Growth hormone deficiency
     Dosage: 13.3 MG POWDER AND SOLVENT FOR SOLUTION FOR INJECTION IN CARTRIDGE
     Route: 058

REACTIONS (2)
  - Rash [Not Recovered/Not Resolved]
  - Device malfunction [Not Recovered/Not Resolved]

NARRATIVE: CASE EVENT DATE: 20240501
